FAERS Safety Report 8924068 (Version 4)
Quarter: 2014Q1

REPORT INFORMATION
  Report Type: Report from Study
  Country: FR (occurrence: FR)
  Receive Date: 20121126
  Receipt Date: 20140317
  Transmission Date: 20141002
  Serious: Yes (Hospitalization)
  Sender: FDA-Public Use
  Company Number: FR-ROCHE-1024701

PATIENT
  Age: 85 Year
  Sex: Male
  Weight: 69 kg

DRUGS (15)
  1. VISMODEGIB [Suspect]
     Indication: BASAL CELL CARCINOMA
     Dosage: DATE OF LAST DOSE PRIOR TO SAE: 05/DEC/2011
     Route: 048
     Dates: start: 20110705
  2. FLECAINE [Concomitant]
     Indication: ARRHYTHMIA
     Route: 065
     Dates: start: 200501, end: 20111110
  3. PLAVIX [Concomitant]
     Indication: PLATELET AGGREGATION
     Route: 065
     Dates: start: 200501
  4. SEROPLEX [Concomitant]
     Indication: DEPRESSION
     Route: 065
     Dates: start: 200801
  5. DOMPERIDONE [Concomitant]
     Indication: VOMITING
     Route: 065
     Dates: start: 199601
  6. PERMIXON [Concomitant]
     Indication: BENIGN PROSTATIC HYPERPLASIA
     Route: 065
     Dates: start: 200101
  7. LANZOR [Concomitant]
     Indication: ULCER
     Route: 065
     Dates: start: 199601
  8. TEMESTA (FRANCE) [Concomitant]
     Indication: ANXIETY
     Dosage: INDICATION:ANXIOLYTIC
     Route: 065
     Dates: start: 199601
  9. GAVISCON (ALGINIC ACID) [Concomitant]
     Indication: GASTROOESOPHAGEAL REFLUX DISEASE
     Route: 065
     Dates: start: 199601
  10. DAFALGAN [Concomitant]
     Indication: MYALGIA
     Route: 065
     Dates: start: 20110728
  11. CORDARONE [Concomitant]
     Indication: ARRHYTHMIA
     Route: 042
     Dates: start: 20111110, end: 20111110
  12. CORDARONE [Concomitant]
     Route: 065
     Dates: start: 20111111
  13. INEXIUM [Concomitant]
     Indication: ULCER
     Route: 065
     Dates: start: 20111111
  14. FUCIDINE [Concomitant]
     Dosage: INDICATION; ANTI-BACTERIAL
     Route: 065
     Dates: start: 20111221, end: 20111231
  15. APROVEL [Concomitant]
     Indication: HYPERTENSION
     Route: 065
     Dates: start: 20120424

REACTIONS (1)
  - Squamous cell carcinoma [Recovered/Resolved]
